FAERS Safety Report 14295328 (Version 2)
Quarter: 2017Q4

REPORT INFORMATION
  Report Type: Spontaneous
  Country: US (occurrence: US)
  Receive Date: 20171218
  Receipt Date: 20171219
  Transmission Date: 20180321
  Serious: No
  Sender: FDA-Public Use
  Company Number: US-PFIZER INC-2017535066

PATIENT
  Age: 10 Year
  Sex: Male

DRUGS (3)
  1. IRINOTECAN HCL [Suspect]
     Active Substance: IRINOTECAN HYDROCHLORIDE
     Dosage: UNK
     Route: 048
     Dates: start: 20161103, end: 20161208
  2. TEMOZOLAMIDE TEVA [Suspect]
     Active Substance: TEMOZOLOMIDE
     Dosage: UNK
     Dates: start: 20161103, end: 20161208
  3. DINUTUXIMAB BETA//CH14.18 [Suspect]
     Active Substance: DINUTUXIMAB
     Dosage: UNK
     Dates: start: 20161103, end: 20161208

REACTIONS (5)
  - Neoplasm progression [Unknown]
  - Lung disorder [None]
  - Bone lesion [None]
  - Anaplastic lymphoma kinase gene mutation [None]
  - Therapy non-responder [None]

NARRATIVE: CASE EVENT DATE: 2016
